FAERS Safety Report 10082048 (Version 1)
Quarter: 2014Q2

REPORT INFORMATION
  Report Type: Spontaneous
  Country: US (occurrence: None)
  Receive Date: 20140414
  Receipt Date: 20140414
  Transmission Date: 20141212
  Serious: Yes (Other)
  Sender: FDA-Public Use
  Company Number: UTC-041897

PATIENT
  Age: 54 Year
  Sex: Male
  Weight: 87.08 kg

DRUGS (3)
  1. TYVASO [Suspect]
     Indication: COR PULMONALE CHRONIC
     Route: 055
     Dates: start: 20121130, end: 20140930
  2. REVATIO(SILDENAFIL CITRATE) (UKNOWN) [Concomitant]
  3. SILDENAFIL(SILDENAFIL) [Concomitant]

REACTIONS (4)
  - Liver disorder [None]
  - Headache [None]
  - Back pain [None]
  - Pain in extremity [None]
